FAERS Safety Report 6542359-5 (Version None)
Quarter: 2010Q1

REPORT INFORMATION
  Report Type: 
  Country: None (occurrence: None)
  Receive Date: 20100114
  Receipt Date: 20100114
  Transmission Date: 20100710
  Serious: No
  Sender: FDA-Public Use
  Company Number: None

PATIENT
  Age: 22 Year
  Sex: Female
  Weight: 61.6892 kg

DRUGS (17)
  1. MERREM [Suspect]
     Indication: CHRONIC SINUSITIS
     Dosage: 2 GRAMS EVERY 8 HOURS IV BOLUS
     Route: 040
     Dates: start: 20091229, end: 20100113
  2. MERREM [Suspect]
     Indication: CYSTIC FIBROSIS
     Dosage: 2 GRAMS EVERY 8 HOURS IV BOLUS
     Route: 040
     Dates: start: 20091229, end: 20100113
  3. ALBUTEROL SULFATE AUTOHALER [Concomitant]
  4. AZITHROMYCIN [Concomitant]
  5. PULMICORT [Concomitant]
  6. COLISTIMETHATE SODIUM [Concomitant]
  7. PULMOZYME [Concomitant]
  8. ALLEGRA [Concomitant]
  9. HEPARIN FLUSH -PORCINE- IN NS IV [Concomitant]
  10. LIDOCAINE-PRILOCAINE  -EMLA- [Concomitant]
  11. LIPASE-PROTEASE-AMYLASE -PANCREASE MT 16- [Concomitant]
  12. MULTIVITAMINS-FA-ZINC [Concomitant]
  13. OMEPRAZOLE [Concomitant]
  14. SODIUM CHLORIDE [Concomitant]
  15. TOBRAMYCIN INHALATION SOLUTION -TOBI- [Concomitant]
  16. TOBRAMYCIN SULFATE [Concomitant]
  17. WATER FOR INJECTION, STERILE INJECTION -STERILE WATER FOR INJECTION- [Concomitant]

REACTIONS (1)
  - EOSINOPHIL COUNT INCREASED [None]
